FAERS Safety Report 13017597 (Version 1)
Quarter: 2016Q4

REPORT INFORMATION
  Report Type: Spontaneous
  Country: US (occurrence: US)
  Receive Date: 20161212
  Receipt Date: 20161212
  Transmission Date: 20170207
  Serious: No
  Sender: FDA-Public Use
  Company Number: US-PFIZER INC-2016572500

PATIENT
  Age: 47 Year
  Sex: Female

DRUGS (3)
  1. ESTRING [Suspect]
     Active Substance: ESTRADIOL
     Indication: VULVOVAGINAL BURNING SENSATION
     Dosage: UNK
     Dates: start: 201611
  2. ESTRING [Suspect]
     Active Substance: ESTRADIOL
     Indication: HOT FLUSH
  3. ESTRING [Suspect]
     Active Substance: ESTRADIOL
     Indication: MOOD SWINGS

REACTIONS (1)
  - Drug ineffective for unapproved indication [Not Recovered/Not Resolved]

NARRATIVE: CASE EVENT DATE: 201611
